FAERS Safety Report 8662755 (Version 5)
Quarter: 2014Q3

REPORT INFORMATION
  Report Type: Spontaneous
  Country: US (occurrence: US)
  Receive Date: 20120712
  Receipt Date: 20140729
  Transmission Date: 20150326
  Serious: Yes (Hospitalization, Other)
  Sender: FDA-Public Use
  Company Number: US-009507513-2011SP051275

PATIENT
  Sex: Female
  Weight: 58.97 kg

DRUGS (5)
  1. ASCORBIC ACID. [Concomitant]
     Active Substance: ASCORBIC ACID
     Indication: GENERAL PHYSICAL CONDITION
     Dosage: 1 PACKET (1000 MG) DAILY
     Dates: start: 200809
  2. [COMPOSITION UNSPECIFIED] [Concomitant]
     Active Substance: UNSPECIFIED INGREDIENT
     Indication: CONTRACEPTION
     Dates: start: 2003
  3. FLONASE [Concomitant]
     Active Substance: FLUTICASONE PROPIONATE
     Indication: HYPERSENSITIVITY
     Dosage: TAKEN ON A REGULAR BASIS SINCE AGE 13
  4. NUVARING [Suspect]
     Active Substance: ETHINYL ESTRADIOL\ETONOGESTREL
     Indication: ACNE CYSTIC
     Dates: start: 200808, end: 20081121
  5. VITAMINS (UNSPECIFIED) [Concomitant]
     Active Substance: VITAMINS
     Indication: GENERAL PHYSICAL CONDITION
     Dosage: 1 DF, QD
     Dates: start: 200809

REACTIONS (5)
  - Off label use [Unknown]
  - Muscle spasms [Unknown]
  - Pulmonary embolism [Unknown]
  - Pelvic venous thrombosis [Unknown]
  - Back pain [Unknown]

NARRATIVE: CASE EVENT DATE: 200808
